FAERS Safety Report 9200478 (Version 3)
Quarter: 2013Q2

REPORT INFORMATION
  Report Type: Report from Study
  Country: US (occurrence: US)
  Receive Date: 20130329
  Receipt Date: 20130513
  Transmission Date: 20140414
  Serious: Yes (Other)
  Sender: FDA-Public Use
  Company Number: US-PFIZER INC-2013090534

PATIENT
  Age: 66 Year
  Sex: Female
  Weight: 75.6 kg

DRUGS (6)
  1. BOSUTINIB [Suspect]
     Indication: CHRONIC MYELOID LEUKAEMIA
     Dosage: 500 MG, DAILY
     Route: 048
     Dates: start: 20110516
  2. LASIX [Concomitant]
     Indication: HYPERTENSION
     Dosage: 40 MG, DAILY
     Route: 048
     Dates: start: 20090902
  3. METOCLOPRAMIDE [Concomitant]
     Indication: NAUSEA
     Dosage: 10 MG, 4X/DAY
     Route: 048
     Dates: start: 20120417
  4. METOPROLOL XL [Concomitant]
     Indication: VENTRICULAR EXTRASYSTOLES
     Dosage: 50 MG, DAILY
     Route: 048
     Dates: start: 20090921, end: 20100228
  5. METOPROLOL XL [Concomitant]
     Dosage: 25 MG, DAILY
     Route: 048
     Dates: start: 20100301
  6. PREDNISONE [Concomitant]
     Indication: SINUS CONGESTION
     Dosage: 10 MG, DAILY
     Route: 048
     Dates: start: 20110829

REACTIONS (2)
  - Atrial fibrillation [Not Recovered/Not Resolved]
  - Ventricular extrasystoles [Not Recovered/Not Resolved]
